FAERS Safety Report 17071011 (Version 6)
Quarter: 2021Q1

REPORT INFORMATION
  Report Type: Spontaneous
  Country: US (occurrence: US)
  Receive Date: 20191125
  Receipt Date: 20210203
  Transmission Date: 20210419
  Serious: No
  Sender: FDA-Public Use
  Company Number: US-PFIZER INC-2019136647

PATIENT
  Age: 68 Year
  Sex: Male

DRUGS (1)
  1. CAVERJECT IMPULSE [Suspect]
     Active Substance: ALPROSTADIL
     Indication: ERECTILE DYSFUNCTION
     Dosage: UNK, AS NEEDED (1 APPLICATOR INTRACAVERNOSAL DAILY PRN (AS NEEDED) ERECTIONS)
     Route: 017

REACTIONS (3)
  - Off label use [Unknown]
  - Product prescribing error [Unknown]
  - Anxiety [Unknown]
